FAERS Safety Report 13259242 (Version 2)
Quarter: 2017Q1

REPORT INFORMATION
  Report Type: Spontaneous
  Country: JP (occurrence: JP)
  Receive Date: 20170222
  Receipt Date: 20170303
  Transmission Date: 20170428
  Serious: No
  Sender: FDA-Public Use
  Company Number: JP-009507513-1702JPN001272J

PATIENT
  Age: 88 Year
  Sex: Male
  Weight: 65 kg

DRUGS (2)
  1. DOBUTAMINE [Concomitant]
     Active Substance: DOBUTAMINE\DOBUTAMINE HYDROCHLORIDE
     Dosage: UNK
     Route: 065
  2. ESLAX INTRAVENOUS 50MG/5.0ML [Suspect]
     Active Substance: ROCURONIUM BROMIDE
     Indication: NEUROMUSCULAR BLOCKING THERAPY
     Dosage: STRENGTH: 50MG/5.0ML; 2 UNK, UNK
     Route: 042
     Dates: start: 20170214, end: 20170216

REACTIONS (2)
  - Body temperature decreased [Recovered/Resolved]
  - Off label use [Unknown]

NARRATIVE: CASE EVENT DATE: 20170215
